FAERS Safety Report 7224689-7 (Version None)
Quarter: 2011Q1

REPORT INFORMATION
  Report Type: 
  Country: None (occurrence: None)
  Receive Date: 20110113
  Receipt Date: 20101104
  Transmission Date: 20110831
  Serious: Yes (Other)
  Sender: FDA-Public Use
  Company Number: US-PFIZER INC-US-WYE-H16975410

PATIENT
  Sex: Female
  Weight: 125 kg

DRUGS (9)
  1. MEDROXYPROGESTERONE ACETATE [Suspect]
     Dosage: 20 MG, 1X/DAY
     Route: 048
  2. PROVERA [Suspect]
     Dosage: UNK
     Route: 048
  3. PREMARIN [Suspect]
     Indication: MENOPAUSE
     Dosage: 1.25 MG 1 TIMES PER 1 DAY BEGAN AT LEAST 10 YEARS AGO
     Route: 048
     Dates: start: 20000101
  4. MEDROXYPROGESTERONE ACETATE [Suspect]
     Dosage: 100 MG, 3X/DAY
     Route: 048
  5. MEDROXYPROGESTERONE ACETATE [Suspect]
     Indication: MENOPAUSE
     Dosage: 30 MG, 1X/DAY
     Route: 048
     Dates: start: 20000101
  6. LASIX [Concomitant]
     Indication: PRODUCT USED FOR UNKNOWN INDICATION
     Dosage: UNK
     Route: 065
  7. HYDROCHLOROTHIAZIDE [Concomitant]
     Indication: PRODUCT USED FOR UNKNOWN INDICATION
     Route: 065
  8. PREMARIN [Suspect]
     Dosage: 1.25 MG 1 TIMES PER 1 DAY BEGAN AT LEAST 10 YEARS AGO
     Route: 048
  9. MEDROXYPROGESTERONE ACETATE [Suspect]
     Dosage: 100 MG, 1X/DAY

REACTIONS (9)
  - DRUG INEFFECTIVE [None]
  - HYPERSENSITIVITY [None]
  - NASOPHARYNGITIS [None]
  - ANXIETY [None]
  - ARTHRALGIA [None]
  - CHONDROPATHY [None]
  - BLOOD URINE PRESENT [None]
  - POSTMENOPAUSAL HAEMORRHAGE [None]
  - PRODUCT COUNTERFEIT [None]
